FAERS Safety Report 19410790 (Version 2)
Quarter: 2021Q2

REPORT INFORMATION
  Report Type: Report from Study
  Country: KR (occurrence: KR)
  Receive Date: 20210614
  Receipt Date: 20210616
  Transmission Date: 20210717
  Serious: Yes (Death, Hospitalization)
  Sender: FDA-Public Use
  Company Number: KR-CELLTRION INC.-2021KR007604

PATIENT

DRUGS (8)
  1. ABEMACICLIB [Suspect]
     Active Substance: ABEMACICLIB
     Dosage: UNK
     Route: 048
     Dates: start: 20210530, end: 20210604
  2. HERZUMA [Suspect]
     Active Substance: TRASTUZUMAB-PKRB
     Dosage: 440 MG
     Dates: start: 20210530, end: 20210604
  3. KEPPRA [Concomitant]
     Active Substance: LEVETIRACETAM
     Dosage: 500 MG, QD (INDICATION: ANTIEPILEPTIC)
     Route: 048
     Dates: start: 20170215, end: 20170531
  4. ABEMACICLIB [Suspect]
     Active Substance: ABEMACICLIB
     Indication: BREAST CANCER METASTATIC
     Dosage: 150MG(50MGX3)/BID/3BOTTLE
     Dates: start: 20210512
  5. HERZUMA [Suspect]
     Active Substance: TRASTUZUMAB-PKRB
     Indication: BREAST CANCER METASTATIC
     Dosage: 395.2MG
     Route: 042
     Dates: start: 20210512
  6. SINGULAIR [Concomitant]
     Active Substance: MONTELUKAST SODIUM
     Dosage: 10 MG, QD (INDICATION: LEUKOTRIENE RECEPTOR ANTAGONIST)
     Route: 048
     Dates: start: 20170405, end: 20170531
  7. STILNOX [Concomitant]
     Active Substance: ZOLPIDEM TARTRATE
     Indication: INSOMNIA
     Dosage: 5 MG, QD (STOP DATE: 31 MAY 2017)
     Route: 048
     Dates: start: 20210214
  8. NEXIUM [Concomitant]
     Active Substance: ESOMEPRAZOLE MAGNESIUM
     Dosage: 40 MG, QD (INDICATION: PROTON PUMP INHIBITOR)
     Route: 048
     Dates: start: 20170214, end: 20170531

REACTIONS (1)
  - Pneumonia [Fatal]

NARRATIVE: CASE EVENT DATE: 20210530
